FAERS Safety Report 11065738 (Version 1)
Quarter: 2015Q2

REPORT INFORMATION
  Report Type: Spontaneous
  Country: US (occurrence: US)
  Receive Date: 20150425
  Receipt Date: 20150425
  Transmission Date: 20150821
  Serious: No
  Sender: FDA-Public Use
  Company Number: US-009507513-1504USA000784

PATIENT
  Age: 19 Year
  Sex: Female
  Weight: 86.17 kg

DRUGS (1)
  1. NEXPLANON [Suspect]
     Active Substance: ETONOGESTREL
     Indication: MENSTRUATION IRREGULAR
     Dosage: 1 ROD UPTO 3 YEARS IN TH LEFT ARM
     Route: 059
     Dates: start: 20140226

REACTIONS (15)
  - Menorrhagia [Not Recovered/Not Resolved]
  - Headache [Unknown]
  - Paraesthesia [Unknown]
  - Breast tenderness [Unknown]
  - Malaise [Unknown]
  - Menstruation delayed [Unknown]
  - Breast enlargement [Unknown]
  - Dizziness [Unknown]
  - Abdominal pain upper [Unknown]
  - Decreased appetite [Unknown]
  - Nausea [Unknown]
  - Adnexa uteri pain [Unknown]
  - Mood altered [Unknown]
  - Disorientation [Unknown]
  - Back pain [Unknown]

NARRATIVE: CASE EVENT DATE: 201502
